FAERS Safety Report 5896284-3 (Version None)
Quarter: 2008Q3

REPORT INFORMATION
  Report Type: 
  Country: None (occurrence: None)
  Receive Date: 20080924
  Receipt Date: 20071030
  Transmission Date: 20090109
  Serious: Yes (Other)
  Sender: FDA-Public Use
  Company Number: US-ASTRAZENECA-2007UW18689

PATIENT
  Age: 36 Year
  Sex: Male
  Weight: 99.8 kg

DRUGS (8)
  1. SEROQUEL [Suspect]
     Indication: BIPOLAR DISORDER
     Route: 048
     Dates: start: 20010101, end: 20020101
  2. ABILIFY (ARIPIPARAZOLE) [Concomitant]
     Dates: start: 19900101
  3. ABILIFY (ARIPIPARAZOLE) [Concomitant]
     Dates: start: 20040101
  4. OMACOR [Concomitant]
  5. TRICOR [Concomitant]
  6. HALDOL SOLUTAB [Concomitant]
  7. STELAZINE [Concomitant]
  8. THORAZINE [Concomitant]
     Dates: start: 20010101, end: 20040101

REACTIONS (3)
  - DIABETES MELLITUS [None]
  - HYPERTENSION [None]
  - PANCREATITIS [None]
